FAERS Safety Report 24923113 (Version 2)
Quarter: 2025Q3

REPORT INFORMATION
  Report Type: Report from Study
  Country: US (occurrence: US)
  Receive Date: 20250204
  Receipt Date: 20250802
  Transmission Date: 20251020
  Serious: Yes (Hospitalization, Other)
  Sender: ALEXION PHARMACEUTICALS
  Company Number: US-AstraZeneca-CH-00794511A

PATIENT
  Sex: Female

DRUGS (1)
  1. TEZEPELUMAB [Suspect]
     Active Substance: TEZEPELUMAB
     Route: 065

REACTIONS (10)
  - Fall [Unknown]
  - Ischaemic cardiomyopathy [Unknown]
  - Laryngeal oedema [Unknown]
  - Coronavirus test [Unknown]
  - Upper respiratory tract infection [Unknown]
  - Dyspnoea [Unknown]
  - Body mass index increased [Unknown]
  - Asthma [Unknown]
  - FEV1/FVC ratio [Unknown]
  - Peak expiratory flow rate [Unknown]
